FAERS Safety Report 8822031 (Version 1)
Quarter: 2012Q4

REPORT INFORMATION
  Report Type: 
  Country: TR (occurrence: TR)
  Receive Date: 20121003
  Receipt Date: 20121003
  Transmission Date: 20130627
  Serious: Yes (Other)
  Sender: FDA-Public Use
  Company Number: TR-AMGEN-TURSP2012061261

PATIENT
  Age: 48 Year
  Sex: Female

DRUGS (1)
  1. ENBREL [Suspect]
     Indication: ANKYLOSING SPONDYLITIS
     Dosage: 25 mg, UNK
     Route: 058
     Dates: start: 20090804, end: 201001

REACTIONS (4)
  - Familial mediterranean fever [Unknown]
  - Arthropathy [Unknown]
  - Hypertension [Unknown]
  - Skin infection [Unknown]
